FAERS Safety Report 9205948 (Version 1)
Quarter: 2013Q1

REPORT INFORMATION
  Report Type: Spontaneous
  Country: US (occurrence: None)
  Receive Date: 20120709
  Receipt Date: 20120709
  Transmission Date: 20140127
  Serious: Yes (Other)
  Sender: FDA-Public Use
  Company Number: PHHY2011US43430

PATIENT
  Age: 40 Year
  Sex: Female

DRUGS (9)
  1. GLEEVEC (IMATINIB) [Suspect]
     Route: 048
  2. ALLEGRA (FEXOFENADINE HYDROCHLORIDE) TABLET [Concomitant]
  3. CITALOPRAM (CITALOPRAM) TABLET [Concomitant]
  4. CIMETIDINE (CIMETIDINE) TABLET [Concomitant]
  5. VITAMIN C [Concomitant]
  6. EPIPEN (EPINEPHRINE) INJECTION [Concomitant]
  7. MULTIVITAMINS (ASCORBIC ACID, ERGOCALCIFEROL, FOLIC ACID, RETINOL, TOCOPHEROL, VITAMIN B NOS) TABLET [Concomitant]
  8. VITAMIN B12 (CYANOCOBALMIN) [Concomitant]
  9. CITRACAL +D (CALCIUM CITRATE, ERGOCALCIFEROL) TABLET [Concomitant]

REACTIONS (3)
  - Depression [None]
  - Weight increased [None]
  - Asthenia [None]
